FAERS Safety Report 17750285 (Version 1)
Quarter: 2020Q2

REPORT INFORMATION
  Report Type: Spontaneous
  Country: US (occurrence: US)
  Receive Date: 20200506
  Receipt Date: 20200506
  Transmission Date: 20200714
  Serious: No
  Sender: FDA-Public Use
  Company Number: US-PFIZER INC-2020179621

PATIENT
  Age: 60 Year
  Sex: Female
  Weight: 79.83 kg

DRUGS (5)
  1. SPIRONOLACTONE. [Suspect]
     Active Substance: SPIRONOLACTONE
     Indication: CHEST PAIN
     Dosage: 25 MG, 1X/DAY (25MG 1 TABLET BY MOUTH DAILY AT NIGHT)
     Route: 048
     Dates: start: 2015, end: 202004
  2. LEVOTHYROXINE. [Concomitant]
     Active Substance: LEVOTHYROXINE
     Indication: HYPOTHYROIDISM
     Dosage: 0.5 MG, DAILY (0.5MG 1 TABLET BY MOUTH DAILY)
     Route: 048
  3. BUSPIRONE [Concomitant]
     Active Substance: BUSPIRONE HYDROCHLORIDE
     Indication: ANXIETY
     Dosage: UNK
  4. CARVEDILOL. [Concomitant]
     Active Substance: CARVEDILOL
     Indication: BLOOD PRESSURE ABNORMAL
     Dosage: 25 MG, DAILY(25MG 1 TABLET BY MOUTH DAILY )
     Route: 048
  5. ASPIRIN [ACETYLSALICYLIC ACID] [Concomitant]
     Active Substance: ASPIRIN
     Dosage: 81 MG, DAILY(81MG 1 TABLET BY MOUTH DAILY )
     Route: 048

REACTIONS (8)
  - Feeling abnormal [Recovered/Resolved]
  - Hypertension [Unknown]
  - Muscle spasms [Unknown]
  - Paraesthesia [Recovered/Resolved]
  - Joint range of motion decreased [Unknown]
  - Dizziness [Unknown]
  - Hypoaesthesia [Unknown]
  - Burning sensation [Recovered/Resolved]

NARRATIVE: CASE EVENT DATE: 2018
